FAERS Safety Report 9800301 (Version 2)
Quarter: 2014Q1

REPORT INFORMATION
  Report Type: Spontaneous
  Country: US (occurrence: US)
  Receive Date: 20140106
  Receipt Date: 20140114
  Transmission Date: 20141002
  Serious: Yes (Hospitalization, Other)
  Sender: FDA-Public Use
  Company Number: US-GILEAD-2014-0091197

PATIENT
  Sex: Male

DRUGS (3)
  1. LETAIRIS [Suspect]
     Indication: PRODUCT USED FOR UNKNOWN INDICATION
     Dosage: 5 MG, QD
     Route: 065
     Dates: start: 20131123
  2. LETAIRIS [Suspect]
     Dates: start: 20130523
  3. REVATIO [Concomitant]

REACTIONS (5)
  - Neuralgia [Unknown]
  - Pulmonary arterial hypertension [Unknown]
  - Unevaluable event [Unknown]
  - Dyspnoea [Unknown]
  - Muscle spasms [Unknown]
